FAERS Safety Report 9827441 (Version 1)
Quarter: 2014Q1

REPORT INFORMATION
  Report Type: Spontaneous
  Country: US (occurrence: US)
  Receive Date: 20140117
  Receipt Date: 20140117
  Transmission Date: 20141002
  Serious: Yes (Death)
  Sender: FDA-Public Use
  Company Number: US-ALEXION-A201400056

PATIENT
  Age: 7 Year
  Sex: Male
  Weight: 27 kg

DRUGS (6)
  1. SOLIRIS 300MG [Suspect]
     Indication: THROMBOTIC MICROANGIOPATHY
     Dosage: 600 MG, SINGLE
     Route: 042
  2. SOLIRIS 300MG [Suspect]
     Indication: OFF LABEL USE
     Dosage: 900 MG, Q2W
     Route: 042
  3. ANTIHYPERTENSIVES [Concomitant]
     Indication: HYPERTENSION
  4. MYCOPHENOLATE MOFETIL [Concomitant]
  5. METHYLPREDNISOLONE MERCK [Concomitant]
     Dosage: 2 MG/KG, QD
  6. INFLIXIMAB [Concomitant]

REACTIONS (6)
  - Organ failure [Fatal]
  - Drug ineffective [Unknown]
  - Drug level below therapeutic [Unknown]
  - Off label use [Unknown]
  - Incorrect dose administered [Unknown]
  - Inappropriate schedule of drug administration [Unknown]
